FAERS Safety Report 5328536-X (Version None)
Quarter: 2007Q2

REPORT INFORMATION
  Report Type: 
  Country: None (occurrence: None)
  Receive Date: 20070518
  Receipt Date: 20070515
  Transmission Date: 20071010
  Serious: Yes (Hospitalization)
  Sender: FDA-Public Use
  Company Number: SE-AVENTIS-200714224GDDC

PATIENT
  Age: 78 Year
  Sex: Male

DRUGS (12)
  1. AMARYL [Suspect]
     Indication: DIABETES MELLITUS
     Dosage: DOSE: UNK
     Route: 048
     Dates: end: 20070305
  2. ENALAPRIL [Suspect]
     Dosage: DOSE: UNK
  3. METOPROLOL SUCCINATE [Concomitant]
     Dosage: DOSE: UNK
  4. FUROSEMIDE [Concomitant]
     Dosage: DOSE: UNK
  5. NITROMEX [Concomitant]
     Dosage: DOSE: UNK
     Route: 060
  6. ACETAMINOPHEN [Concomitant]
     Dosage: DOSE: UNK
  7. DUROFERON [Concomitant]
     Dosage: DOSE: UNK
  8. ALLOPURINOL [Concomitant]
     Dosage: DOSE: UNK
  9. TROMBYL [Concomitant]
     Dosage: DOSE: UNK
  10. LAKTULOS APELSIN [Concomitant]
     Dosage: DOSE: UNK
     Route: 048
  11. IMDUR [Concomitant]
     Dosage: DOSE: UNK
  12. PANTOLOC                           /01263201/ [Concomitant]
     Dosage: DOSE: UNK

REACTIONS (4)
  - BLOOD CREATININE INCREASED [None]
  - HYPERKALAEMIA [None]
  - HYPOGLYCAEMIA [None]
  - HYPONATRAEMIA [None]
